FAERS Safety Report 7215614-3 (Version None)
Quarter: 2011Q1

REPORT INFORMATION
  Report Type: 
  Country: None (occurrence: None)
  Receive Date: 20110107
  Receipt Date: 20101216
  Transmission Date: 20110831
  Serious: No
  Sender: FDA-Public Use
  Company Number: US-B.I. PHARMACEUTICALS,INC./RIDGEFIELD-2010-BP-14835BP

PATIENT
  Age: 69 Year
  Sex: Male

DRUGS (9)
  1. PRADAXA [Suspect]
     Indication: ATRIAL FIBRILLATION
     Dosage: 300 MG
     Route: 048
     Dates: start: 20101201
  2. TOPROL-XL [Concomitant]
  3. DIGOXIN [Concomitant]
     Indication: CARDIAC DISORDER
  4. PRADAXA [Suspect]
     Indication: CEREBROVASCULAR ACCIDENT PROPHYLAXIS
  5. PRILOSEC [Concomitant]
     Indication: DYSPEPSIA
  6. CRESTOR [Concomitant]
     Indication: BLOOD CHOLESTEROL INCREASED
  7. INSULIN [Concomitant]
     Indication: DIABETES MELLITUS
  8. LISINOPRIL [Concomitant]
     Indication: HYPERTENSION
  9. NITROGLYCERIN [Concomitant]
     Indication: CARDIAC DISORDER

REACTIONS (3)
  - HEADACHE [None]
  - GOUT [None]
  - DYSPEPSIA [None]
